FAERS Safety Report 8841816 (Version 3)
Quarter: 2013Q1

REPORT INFORMATION
  Report Type: Spontaneous
  Country: US (occurrence: US)
  Receive Date: 20121016
  Receipt Date: 20130122
  Transmission Date: 20140127
  Serious: Yes (Other)
  Sender: FDA-Public Use
  Company Number: US-JNJFOC-20121004741

PATIENT
  Age: 44 Year
  Sex: Female
  Weight: 77.11 kg

DRUGS (7)
  1. REMICADE [Suspect]
     Indication: CROHN^S DISEASE
     Route: 042
     Dates: start: 20100311
  2. REMICADE [Suspect]
     Indication: CROHN^S DISEASE
     Route: 042
     Dates: start: 20120829
  3. ACIPHEX [Concomitant]
     Indication: GASTROOESOPHAGEAL REFLUX DISEASE
     Route: 065
  4. LIPITOR [Concomitant]
     Indication: DYSLIPIDAEMIA
     Route: 065
  5. METOPROLOL [Concomitant]
     Indication: HYPERTENSION
     Route: 065
  6. TRAZODONE [Concomitant]
     Indication: INSOMNIA
     Dosage: 50MG HALF TABLET AT NIGHT TIME
     Route: 065
  7. TRAZODONE [Concomitant]
     Indication: ANXIETY
     Dosage: 50MG HALF TABLET AT NIGHT TIME
     Route: 065

REACTIONS (8)
  - Central nervous system lesion [Not Recovered/Not Resolved]
  - Blindness [Unknown]
  - Nervous system disorder [Unknown]
  - Amnesia [Unknown]
  - Paraesthesia [Unknown]
  - Hypoaesthesia [Unknown]
  - Crohn^s disease [Unknown]
  - Headache [Unknown]
